FAERS Safety Report 6639978-4 (Version None)
Quarter: 2010Q1

REPORT INFORMATION
  Report Type: 
  Country: None (occurrence: None)
  Receive Date: 20100318
  Receipt Date: 20100223
  Transmission Date: 20100710
  Serious: Yes (Other)
  Sender: FDA-Public Use
  Company Number: PHHY2010GR10317

PATIENT
  Age: 67 Year
  Sex: Male

DRUGS (2)
  1. COPALIA [Suspect]
     Dosage: 160/5 MG DAILY
  2. CIBADREX [Concomitant]
     Indication: HYPERTENSION
     Dosage: UNK

REACTIONS (2)
  - BLOOD PRESSURE DECREASED [None]
  - VISION BLURRED [None]
